FAERS Safety Report 6477717-0 (Version None)
Quarter: 2009Q4

REPORT INFORMATION
  Report Type: 
  Country: None (occurrence: None)
  Receive Date: 20091207
  Receipt Date: 20091204
  Transmission Date: 20100525
  Serious: Yes (Other)
  Sender: FDA-Public Use
  Company Number: DE-PFIZER INC-2009286096

PATIENT
  Sex: Male

DRUGS (1)
  1. LYRICA [Suspect]
     Indication: POLYNEUROPATHY
     Dosage: UNK
     Route: 048
     Dates: start: 20090601

REACTIONS (1)
  - AUTOIMMUNE HEPATITIS [None]
